FAERS Safety Report 6460024-X (Version None)
Quarter: 2009Q4

REPORT INFORMATION
  Report Type: 
  Country: None (occurrence: None)
  Receive Date: 20091129
  Receipt Date: 20091119
  Transmission Date: 20100525
  Serious: Yes (Hospitalization)
  Sender: FDA-Public Use
  Company Number: PHHO2008JP14801

PATIENT
  Sex: Female
  Weight: 53 kg

DRUGS (11)
  1. NEORAL [Suspect]
     Indication: RENAL TRANSPLANT
     Dosage: 320 MG, BID
     Route: 048
     Dates: start: 20081110
  2. SIMULECT [Suspect]
     Indication: RENAL TRANSPLANT
     Dosage: 20 MG, UNK
     Route: 042
  3. MYCOPHENOLATE MOFETIL [Suspect]
     Indication: RENAL TRANSPLANT
     Dosage: 2 G, BID
     Route: 048
     Dates: start: 20081106, end: 20081205
  4. MYCOPHENOLATE MOFETIL [Suspect]
     Dosage: 0.5 G, BID
     Route: 048
     Dates: start: 20081206, end: 20081210
  5. MYCOPHENOLATE MOFETIL [Suspect]
     Dosage: 0.5 G, BID
     Route: 048
     Dates: start: 20081223, end: 20081228
  6. MYCOPHENOLATE MOFETIL [Suspect]
     Dosage: 1 G, BID
     Route: 048
     Dates: start: 20081229
  7. PREDONINE [Suspect]
     Indication: RENAL TRANSPLANT
     Dosage: 5 MG
     Route: 048
     Dates: start: 20081106
  8. MICARDIS [Concomitant]
     Indication: HYPERTENSION
  9. TAKEPRON [Concomitant]
     Indication: GASTRITIS
  10. ISODINE [Concomitant]
  11. LAXOBERON [Concomitant]
     Indication: CONSTIPATION

REACTIONS (1)
  - CYTOMEGALOVIRUS TEST POSITIVE [None]
